FAERS Safety Report 9431246 (Version 1)
Quarter: 2013Q3

REPORT INFORMATION
  Report Type: Report from Study
  Country: GB (occurrence: GB)
  Receive Date: 20130730
  Receipt Date: 20130730
  Transmission Date: 20140515
  Serious: Yes (Hospitalization)
  Sender: FDA-Public Use
  Company Number: GB-JNJFOC-20130715495

PATIENT
  Age: 70 Year
  Sex: Male
  Weight: 80 kg

DRUGS (6)
  1. USTEKINUMAB [Suspect]
     Indication: PSORIASIS
     Route: 058
     Dates: start: 20120209, end: 20130326
  2. AMLODIPINE [Concomitant]
     Dates: start: 20090601
  3. CO-CODAMOL [Concomitant]
     Dates: start: 20090601
  4. SIMVASTATIN [Concomitant]
     Dates: start: 20090601
  5. OMEPRAZOLE [Concomitant]
     Dates: start: 20100713
  6. LERCANIDIPINE [Concomitant]
     Dates: start: 20120115

REACTIONS (1)
  - Knee arthroplasty [Recovered/Resolved]
